FAERS Safety Report 5724912-1 (Version None)
Quarter: 2008Q2

REPORT INFORMATION
  Report Type: 
  Country: None (occurrence: None)
  Receive Date: 20080501
  Receipt Date: 20080418
  Transmission Date: 20081010
  Serious: Yes (Other)
  Sender: FDA-Public Use
  Company Number: FR-AMGEN-UK275385

PATIENT
  Sex: Female

DRUGS (12)
  1. NEULASTA [Suspect]
     Indication: CHEMOTHERAPY
     Route: 058
  2. HERCEPTIN [Concomitant]
     Route: 042
     Dates: start: 20070515, end: 20071030
  3. ENDOXAN [Concomitant]
     Route: 042
     Dates: start: 20061002, end: 20070128
  4. POLARAMINE [Concomitant]
  5. TAMOXIFEN CITRATE [Concomitant]
     Route: 048
     Dates: start: 20070501
  6. TAXOTERE [Concomitant]
     Route: 042
     Dates: start: 20061002, end: 20070123
  7. FARMORUBICIN [Concomitant]
     Route: 042
     Dates: start: 20061002, end: 20070123
  8. DEXRAZOXANE [Concomitant]
     Dates: start: 20061002, end: 20070123
  9. ZOPHREN [Concomitant]
  10. PRIMPERAN TAB [Concomitant]
  11. SOLU-MEDROL [Concomitant]
  12. GLUCOSE/SODIUM CHLORIDE/SODIUM LACTATE [Concomitant]

REACTIONS (2)
  - ASTHENIA [None]
  - HYPOTHYROIDISM [None]
